FAERS Safety Report 10272370 (Version 1)
Quarter: 2014Q2

REPORT INFORMATION
  Report Type: Spontaneous
  Country: US (occurrence: None)
  Receive Date: 20140630
  Receipt Date: 20140630
  Transmission Date: 20141212
  Serious: Yes (Other)
  Sender: FDA-Public Use
  Company Number: None

PATIENT
  Age: 60 Year
  Sex: Female
  Weight: 88.45 kg

DRUGS (1)
  1. HUMIRA PEN 40 MG ABBOTT [Suspect]
     Indication: PSORIATIC ARTHROPATHY
     Dosage: STRENGTH: 40MG?DOSE FORM: INJECTABLE?FREQUENCY: Q WEEK ?ROUTE : SUBCUTANEOUS 057
     Route: 058
     Dates: start: 20121024, end: 20140514

REACTIONS (2)
  - Melanocytic naevus [None]
  - Basal cell carcinoma [None]
